FAERS Safety Report 26044909 (Version 1)
Quarter: 2025Q4

REPORT INFORMATION
  Report Type: Spontaneous
  Country: EU (occurrence: EU)
  Receive Date: 20251114
  Receipt Date: 20251114
  Transmission Date: 20260117
  Serious: Yes (Other)
  Sender: TEVA
  Company Number: EU-TEVA-VS-3390941

PATIENT

DRUGS (1)
  1. EMTRICITABINE\TENOFOVIR DISOPROXIL [Suspect]
     Active Substance: EMTRICITABINE\TENOFOVIR DISOPROXIL
     Indication: Prophylaxis against HIV infection
     Dosage: CONTINUOUS OR INTERMITTENT TREATMENT ACCORDING TO A 2/111 REGIMEN OVER 3 DAYS (TWO TABLETS BETWEE...
     Route: 065

REACTIONS (1)
  - Toxic skin eruption [Unknown]
